FAERS Safety Report 19698635 (Version 2)
Quarter: 2021Q4

REPORT INFORMATION
  Report Type: Spontaneous
  Country: DE (occurrence: DE)
  Receive Date: 20210813
  Receipt Date: 20211116
  Transmission Date: 20220303
  Serious: No
  Sender: FDA-Public Use
  Company Number: DE-LESVI-2021077439

PATIENT
  Sex: Female

DRUGS (1)
  1. PREGABALIN [Suspect]
     Active Substance: PREGABALIN
     Indication: Neuralgia
     Dosage: UNK
     Route: 065

REACTIONS (1)
  - Vasculitis [Unknown]
